FAERS Safety Report 22925178 (Version 2)
Quarter: 2023Q4

REPORT INFORMATION
  Report Type: Spontaneous
  Country: US (occurrence: US)
  Receive Date: 20230908
  Receipt Date: 20231201
  Transmission Date: 20240109
  Serious: No
  Sender: FDA-Public Use
  Company Number: US-BRISTOL-MYERS SQUIBB COMPANY-2023-127148

PATIENT
  Age: 60 Year
  Sex: Female
  Weight: 93.44 kg

DRUGS (2)
  1. REVLIMID [Suspect]
     Active Substance: LENALIDOMIDE
     Indication: Plasma cell myeloma
     Dosage: 21D ON 7D OFF
     Route: 048
     Dates: start: 20230601
  2. DARZALEX [Suspect]
     Active Substance: DARATUMUMAB
     Indication: Product used for unknown indication

REACTIONS (2)
  - Diarrhoea [Not Recovered/Not Resolved]
  - Dysgeusia [Recovering/Resolving]
